FAERS Safety Report 25520547 (Version 3)
Quarter: 2025Q3

REPORT INFORMATION
  Report Type: Spontaneous
  Country: US (occurrence: US)
  Receive Date: 20250704
  Receipt Date: 20250812
  Transmission Date: 20251021
  Serious: Yes (Other)
  Sender: ALEXION PHARMACEUTICALS
  Company Number: US-AstraZeneca-CH-00901354AP

PATIENT
  Age: 72 Year
  Sex: Male
  Weight: 91.2 kg

DRUGS (2)
  1. FASENRA [Suspect]
     Active Substance: BENRALIZUMAB
     Indication: Product used for unknown indication
  2. FASENRA [Suspect]
     Active Substance: BENRALIZUMAB

REACTIONS (8)
  - Chronic obstructive pulmonary disease [Unknown]
  - Dyspnoea [Unknown]
  - Myocardial infarction [Unknown]
  - Blindness [Unknown]
  - Device leakage [Unknown]
  - Product dose omission issue [Unknown]
  - Product dose omission issue [Unknown]
  - Inappropriate schedule of product administration [Unknown]

NARRATIVE: CASE EVENT DATE: 20250627
